FAERS Safety Report 17964723 (Version 2)
Quarter: 2020Q3

REPORT INFORMATION
  Report Type: Spontaneous
  Country: US (occurrence: US)
  Receive Date: 20200630
  Receipt Date: 20200706
  Transmission Date: 20201103
  Serious: No
  Sender: FDA-Public Use
  Company Number: US-PFIZER INC-2020250014

PATIENT
  Age: 51 Year
  Sex: Male
  Weight: 112.49 kg

DRUGS (2)
  1. SERTRALINE [Concomitant]
     Active Substance: SERTRALINE HYDROCHLORIDE
     Indication: ANXIETY
     Dosage: 100 MG, 1X/DAY
  2. XELJANZ XR [Suspect]
     Active Substance: TOFACITINIB CITRATE
     Indication: RHEUMATOID ARTHRITIS
     Dosage: 11 MG, 1X/DAY
     Route: 048

REACTIONS (7)
  - Contusion [Recovered/Resolved]
  - Balance disorder [Unknown]
  - Restless legs syndrome [Unknown]
  - Condition aggravated [Recovering/Resolving]
  - Fall [Recovered/Resolved]
  - Erythema [Unknown]
  - Sensitive skin [Unknown]

NARRATIVE: CASE EVENT DATE: 202006
